FAERS Safety Report 9882433 (Version 1)
Quarter: 2014Q1

REPORT INFORMATION
  Report Type: Spontaneous
  Country: US (occurrence: US)
  Receive Date: 20140207
  Receipt Date: 20140207
  Transmission Date: 20141002
  Serious: No
  Sender: FDA-Public Use
  Company Number: US-TEVA-461281USA

PATIENT
  Age: 34 Year
  Sex: Female
  Weight: 77.63 kg

DRUGS (2)
  1. PARAGARD 380A [Suspect]
     Indication: CONTRACEPTION
     Route: 015
     Dates: start: 20140204
  2. PRENATAL VITAMINS [Concomitant]
     Indication: POSTPARTUM STATE

REACTIONS (4)
  - Fatigue [Recovered/Resolved]
  - Discomfort [Not Recovered/Not Resolved]
  - Metrorrhagia [Not Recovered/Not Resolved]
  - Dizziness [Recovered/Resolved]
